FAERS Safety Report 14851264 (Version 2)
Quarter: 2018Q2

REPORT INFORMATION
  Report Type: Spontaneous
  Country: TT (occurrence: TT)
  Receive Date: 20180507
  Receipt Date: 20180510
  Transmission Date: 20180711
  Serious: Yes (Death, Hospitalization, Other)
  Sender: FDA-Public Use
  Company Number: BB-B.I. PHARMACEUTICALS,INC./RIDGEFIELD-2018-BI-024352

PATIENT
  Age: 5 Decade
  Sex: Male

DRUGS (1)
  1. PRADAXA [Suspect]
     Active Substance: DABIGATRAN ETEXILATE MESYLATE
     Indication: ISCHAEMIC CARDIOMYOPATHY
     Route: 065

REACTIONS (6)
  - Cardiac tamponade [Fatal]
  - Haemorrhage [Unknown]
  - Pericardial effusion [Unknown]
  - Hypotension [Recovered/Resolved]
  - Acute kidney injury [Unknown]
  - Hypercoagulation [Unknown]
